FAERS Safety Report 6053136-6 (Version None)
Quarter: 2009Q1

REPORT INFORMATION
  Report Type: 
  Country: None (occurrence: None)
  Receive Date: 20090123
  Receipt Date: 20090109
  Transmission Date: 20090719
  Serious: Yes (Hospitalization)
  Sender: FDA-Public Use
  Company Number: 607828

PATIENT
  Age: 70 Year
  Sex: Male
  Weight: 91.5 kg

DRUGS (15)
  1. TORSEMIDE [Suspect]
     Indication: HYPERTENSION
     Dosage: 20 MG 3 PER DAY ORAL
     Route: 048
  2. NEORECORMON (EPOETIN BETA) [Suspect]
     Indication: NEPHROGENIC ANAEMIA
     Dosage: 4000 IU 2 PER MONTH SUBCUTANEOUS
     Route: 058
  3. CARVEDILOL [Suspect]
     Indication: HYPERTENSION
     Dosage: 12.5 MG 1 PER DAY ORAL
     Route: 048
  4. MOXONIDINE [Suspect]
     Indication: HYPERTENSION
     Dosage: 0.2 MG 3 PER DAY ORAL
     Route: 048
  5. ACETOLYT (HEXACALCIUM-HEXASODIUM-HEPTACITRATE COMP) [Suspect]
     Indication: ACIDOSIS
     Dosage: 2.5 GRAM 1 PER DAY ORAL
     Route: 048
     Dates: end: 20080720
  6. ALLOPURINOL [Suspect]
     Indication: HYPERURICAEMIA
     Dosage: 50 MG 1 PER DAY ORAL
     Route: 048
  7. ASPIRIN [Suspect]
     Indication: PROPHYLAXIS
     Dosage: 100 MG 1 PER DAY ORAL
     Route: 048
     Dates: start: 20000101
  8. DIGITOXIN [Suspect]
     Indication: CARDIAC FAILURE
     Dosage: 0.07 MG 1 PER DAY ORAL
     Route: 048
     Dates: start: 20080625, end: 20080720
  9. DIOVAN [Suspect]
     Indication: HYPERTENSION
     Dosage: 160 MG 1 PER DAY ORAL
     Route: 048
  10. EBRANTIL (URAPIDIL) [Suspect]
     Indication: HYPERTENSION
     Dosage: 60 MG 2 PER DAY ORAL
     Route: 048
  11. EINSALPHA (ALFACALCIDOL) [Suspect]
     Indication: HYPERPARATHYROIDISM
     Dosage: 0.25 UG 1 PER DAY ORAL
     Route: 048
     Dates: start: 20080520
  12. FLUVASTATIN SODIUM [Suspect]
     Indication: HYPERCHOLESTEROLAEMIA
     Dosage: 20 MG 1 PER DAY ORAL
     Route: 048
  13. PANTOPRAZOLE SODIUM [Suspect]
     Indication: HELICOBACTER GASTRITIS
     Dosage: 40 MG 2 PER DAY ORAL
     Route: 048
  14. PLAVIX [Suspect]
     Indication: PROPHYLAXIS
     Dosage: 75 MG 1 PER DAY ORAL
     Route: 048
     Dates: start: 20080401, end: 20080720
  15. XIPAMIDE [Suspect]
     Indication: HYPERTENSION
     Dosage: 20 MG 1 PER DAY ORAL
     Route: 048

REACTIONS (10)
  - BLOOD CREATININE INCREASED [None]
  - BLOOD IRON DECREASED [None]
  - BLOOD UREA INCREASED [None]
  - CARDIOACTIVE DRUG LEVEL INCREASED [None]
  - GAMMA-GLUTAMYLTRANSFERASE INCREASED [None]
  - GENERAL PHYSICAL HEALTH DETERIORATION [None]
  - HAEMATOCRIT DECREASED [None]
  - HAEMOGLOBIN DECREASED [None]
  - INTERNATIONAL NORMALISED RATIO INCREASED [None]
  - PROTHROMBIN TIME PROLONGED [None]
